FAERS Safety Report 7315913-0 (Version None)
Quarter: 2011Q1

REPORT INFORMATION
  Report Type: 
  Country: None (occurrence: None)
  Receive Date: 20110225
  Receipt Date: 20110218
  Transmission Date: 20110831
  Serious: Yes (Hospitalization)
  Sender: FDA-Public Use
  Company Number: US-B.I. PHARMACEUTICALS,INC./RIDGEFIELD-2011-BP-05000BP

PATIENT
  Sex: Female

DRUGS (8)
  1. PRADAXA [Suspect]
     Dosage: 300 MG
     Route: 048
     Dates: start: 20110209
  2. ARMOR THYROID [Concomitant]
     Indication: HYPOTHYROIDISM
     Dosage: 75 MG
     Route: 048
     Dates: start: 20060101
  3. METOPROLOL SUCCINATE [Concomitant]
     Indication: HYPERTENSION
     Dosage: 25 MG
     Route: 048
     Dates: start: 20090101
  4. ALENDRONATE [Concomitant]
     Indication: OSTEOPOROSIS
     Route: 048
     Dates: start: 20050101
  5. TRAMODOL [Concomitant]
     Indication: PAIN IN EXTREMITY
     Route: 048
     Dates: start: 20000101
  6. PRADAXA [Suspect]
     Indication: ATRIAL FIBRILLATION
     Dosage: 300 MG
     Route: 048
     Dates: start: 20110120, end: 20110207
  7. DIOVAN [Concomitant]
     Indication: HYPERTENSION
     Dosage: 80 MG
     Route: 048
     Dates: start: 20090101
  8. NORCO [Concomitant]
     Indication: PAIN IN EXTREMITY
     Route: 048
     Dates: start: 20110210

REACTIONS (3)
  - FLANK PAIN [None]
  - PAIN IN EXTREMITY [None]
  - THROMBOSIS [None]
